FAERS Safety Report 17355673 (Version 1)
Quarter: 2020Q1

REPORT INFORMATION
  Report Type: Spontaneous
  Country: US (occurrence: US)
  Receive Date: 20190823
  Receipt Date: 20190823
  Transmission Date: 20200409
  Serious: Yes (Life-Threatening, Hospitalization)
  Sender: FDA-Public Use
  Company Number: None

PATIENT
  Age: 16 Year
  Sex: Male

DRUGS (8)
  1. ARIPRPRAZOLE [Concomitant]
     Active Substance: ARIPIPRAZOLE
  2. BIG CHIEF EXTRACT ROVE APE [Suspect]
     Active Substance: CANNABIDIOL\.DELTA.8-TETRAHYDROCANNABINOL
  3. BENZITROPINE [Concomitant]
  4. MELATONIN [Concomitant]
     Active Substance: MELATONIN
  5. DIVALPROEX [Concomitant]
     Active Substance: DIVALPROEX SODIUM
  6. BUPRPION [Concomitant]
  7. ESCITALOPRAM [Concomitant]
     Active Substance: ESCITALOPRAM OXALATE
  8. INDICA ROVE KUSH INDICA [Suspect]
     Active Substance: CANNABIDIOL\.DELTA.8-TETRAHYDROCANNABINOL

REACTIONS (6)
  - Respiratory failure [None]
  - Haemorrhage [None]
  - Acute respiratory distress syndrome [None]
  - Haemoglobin decreased [None]
  - Pulmonary oedema [None]
  - Infection [None]
